FAERS Safety Report 9756447 (Version 1)
Quarter: 2013Q4

REPORT INFORMATION
  Report Type: Spontaneous
  Country: US (occurrence: US)
  Receive Date: 20131213
  Receipt Date: 20131213
  Transmission Date: 20140711
  Serious: No
  Sender: FDA-Public Use
  Company Number: US-GLAXOSMITHKLINE-A1041471A

PATIENT
  Age: 46 Year
  Sex: Female

DRUGS (1)
  1. NICODERM CQ CLEAR 21MG [Suspect]
     Indication: SMOKING CESSATION THERAPY
     Route: 062
     Dates: start: 20130912, end: 20130913

REACTIONS (11)
  - Nasal discomfort [Recovered/Resolved]
  - Oral discomfort [Recovered/Resolved]
  - Eye irritation [Recovered/Resolved]
  - Application site pruritus [Recovered/Resolved]
  - Nasal discomfort [Recovered/Resolved]
  - Stomatitis [Recovered/Resolved]
  - Rhinalgia [Recovered/Resolved]
  - Oral pain [Recovered/Resolved]
  - Eye pain [Recovered/Resolved]
  - Lacrimation increased [Recovered/Resolved]
  - Product quality issue [Unknown]
